FAERS Safety Report 9069431 (Version 1)
Quarter: 2013Q1

REPORT INFORMATION
  Report Type: Report from Study
  Country: US (occurrence: US)
  Receive Date: 20130131
  Receipt Date: 20130131
  Transmission Date: 20140127
  Serious: Yes (Hospitalization, Other)
  Sender: FDA-Public Use
  Company Number: US-ABBOTT-12P-163-0944255-00

PATIENT
  Sex: Female
  Weight: 91.71 kg

DRUGS (8)
  1. HUMIRA 40 MG/0.8 ML PEN [Suspect]
     Indication: RHEUMATOID ARTHRITIS
     Route: 058
  2. METHOTREXATE [Concomitant]
     Indication: PRODUCT USED FOR UNKNOWN INDICATION
  3. METHOTREXATE [Concomitant]
     Dosage: 0.7 ML/WEEK
     Route: 050
  4. MOBIC [Concomitant]
     Indication: PAIN
  5. PLAQUENIL [Concomitant]
     Indication: PRODUCT USED FOR UNKNOWN INDICATION
     Route: 048
  6. PREDNISONE [Concomitant]
     Indication: PRODUCT USED FOR UNKNOWN INDICATION
     Dosage: EVERY DAY 5 MG IN AM AND 2 MG IN PM
     Route: 048
  7. PREDNISONE [Concomitant]
     Route: 048
  8. METHOTREXATE [Concomitant]
     Indication: PRODUCT USED FOR UNKNOWN INDICATION
     Dosage: 9 PER WEEK TABLETS
     Route: 048
     Dates: start: 201204

REACTIONS (7)
  - Sepsis [Unknown]
  - Arthropod bite [Recovering/Resolving]
  - Cellulitis [Unknown]
  - Sinusitis [Unknown]
  - Bronchitis [Unknown]
  - Localised infection [Unknown]
  - Cellulitis [Unknown]
